FAERS Safety Report 5063837-4 (Version None)
Quarter: 2006Q3

REPORT INFORMATION
  Report Type: 
  Country: None (occurrence: None)
  Receive Date: 20060703
  Receipt Date: 20051107
  Transmission Date: 20061208
  Serious: No
  Sender: FDA-Public Use
  Company Number: 2005S1010949

PATIENT
  Age: 74 Year
  Sex: Female

DRUGS (8)
  1. CLOZAPINE [Suspect]
     Indication: SCHIZOPHRENIA
     Dosage: SEE IMAGE
     Route: 048
  2. DONEPEZIL HYDROCHLORIDE [Concomitant]
  3. ROSIGLITAZONE MALEATE [Concomitant]
  4. CARBIDOPA AND LEVODOPA [Concomitant]
  5. INSULIN [Concomitant]
  6. LOVASTATIN [Concomitant]
  7. LEVOTHYROXINE SODIUM [Concomitant]
  8. CITALOPRAM HYDROBROMIDE [Concomitant]

REACTIONS (3)
  - GRANULOCYTOPENIA [None]
  - NAUSEA [None]
  - VOMITING [None]
